FAERS Safety Report 8387912-1 (Version None)
Quarter: 2012Q2

REPORT INFORMATION
  Report Type: 
  Country: None (occurrence: None)
  Receive Date: 20120525
  Receipt Date: 20120521
  Transmission Date: 20120825
  Serious: Yes (Other)
  Sender: FDA-Public Use
  Company Number: US-BAYER-2012-018303

PATIENT
  Age: 44 Year
  Sex: Female
  Weight: 89.796 kg

DRUGS (11)
  1. YASMIN [Suspect]
     Indication: CONTRACEPTION
     Dosage: UNK
     Route: 048
     Dates: start: 20060101, end: 20080101
  2. YASMIN [Suspect]
     Dosage: UNK
     Dates: start: 20060501, end: 20110601
  3. DROSPIRENONE AND ETHINYL ESTRADIOL [Suspect]
     Dosage: UNK
     Dates: start: 20060501, end: 20110601
  4. DROSPIRENONE AND ETHINYL ESTRADIOL [Suspect]
     Indication: CONTRACEPTION
     Dosage: UNK
     Route: 048
     Dates: start: 20090101, end: 20110601
  5. CENTRUM [Concomitant]
     Dosage: DAILY
  6. BIOTIN [Concomitant]
     Dosage: DAILY
  7. VITAMIN D [Concomitant]
     Dosage: DAILY
  8. FISH OIL [Concomitant]
     Dosage: DAILY
  9. NASONEX [Concomitant]
  10. VITAMIN C [Concomitant]
     Dosage: DAILY
  11. CLARITIN [Concomitant]
     Indication: MULTIPLE ALLERGIES
     Dosage: DAILY

REACTIONS (2)
  - DEEP VEIN THROMBOSIS [None]
  - PAIN IN EXTREMITY [None]
